FAERS Safety Report 5401081-9 (Version None)
Quarter: 2007Q3

REPORT INFORMATION
  Report Type: 
  Country: None (occurrence: None)
  Receive Date: 20070731
  Receipt Date: 20070723
  Transmission Date: 20080115
  Serious: Yes (Other)
  Sender: FDA-Public Use
  Company Number: US-JNJFOC-20070702409

PATIENT
  Sex: Female

DRUGS (2)
  1. LEVAQUIN [Suspect]
     Route: 048
     Dates: start: 20070221, end: 20070306
  2. LEVAQUIN [Suspect]
     Indication: BRONCHITIS
     Route: 048
     Dates: start: 20070221, end: 20070306

REACTIONS (4)
  - PERIPHERAL VASCULAR DISORDER [None]
  - PHLEBITIS [None]
  - SKIN ULCER [None]
  - VEIN DISORDER [None]
